FAERS Safety Report 12483646 (Version 2)
Quarter: 2016Q3

REPORT INFORMATION
  Report Type: Spontaneous
  Country: FR (occurrence: FR)
  Receive Date: 20160621
  Receipt Date: 20160701
  Transmission Date: 20161109
  Serious: Yes (Life-Threatening, Hospitalization)
  Sender: FDA-Public Use
  Company Number: FR-ACCORD-041719

PATIENT
  Age: 50 Year
  Sex: Female
  Weight: 110 kg

DRUGS (2)
  1. ALPRAZOLAM. [Suspect]
     Active Substance: ALPRAZOLAM
     Dosage: SID OF 15 MG
  2. TRAMADOL/TRAMADOL HYDROCHLORIDE [Suspect]
     Active Substance: TRAMADOL HYDROCHLORIDE
     Dosage: A SUPPOSED INGESTED DOSE OR SID OF 18 G

REACTIONS (9)
  - Hepatic failure [Recovered/Resolved]
  - Acute kidney injury [Recovering/Resolving]
  - Status epilepticus [Recovered/Resolved]
  - Mydriasis [Recovered/Resolved]
  - Respiratory failure [Recovered/Resolved]
  - Neuromyopathy [Unknown]
  - Atrioventricular block [Recovered/Resolved]
  - Cardiogenic shock [Recovered/Resolved]
  - Toxicity to various agents [Unknown]
